FAERS Safety Report 9853010 (Version 2)
Quarter: 2014Q1

REPORT INFORMATION
  Report Type: Spontaneous
  Country: US (occurrence: US)
  Receive Date: 20140129
  Receipt Date: 20140129
  Transmission Date: 20141002
  Serious: Yes (Death, Other)
  Sender: FDA-Public Use
  Company Number: US-BAXTER-2014BAX003058

PATIENT
  Sex: Male

DRUGS (9)
  1. DIANEAL LOW CALCIUM [Suspect]
     Indication: RENAL FAILURE CHRONIC
     Route: 033
     Dates: end: 20140120
  2. DIANEAL LOW CALCIUM [Suspect]
     Indication: PERITONEAL DIALYSIS
  3. DIANEAL LOW CALCIUM [Suspect]
     Indication: RENAL FAILURE CHRONIC
     Route: 033
     Dates: end: 20140120
  4. DIANEAL LOW CALCIUM [Suspect]
     Indication: PERITONEAL DIALYSIS
  5. DIANEAL LOW CALCIUM [Suspect]
     Indication: RENAL FAILURE CHRONIC
     Route: 033
     Dates: end: 20140120
  6. DIANEAL LOW CALCIUM [Suspect]
     Indication: PERITONEAL DIALYSIS
  7. EXTRANEAL [Suspect]
     Indication: RENAL FAILURE CHRONIC
     Route: 033
     Dates: end: 20140120
  8. EXTRANEAL [Suspect]
     Indication: PERITONEAL DIALYSIS
  9. EXTRANEAL [Suspect]
     Indication: PERITONEAL DIALYSIS

REACTIONS (2)
  - Osteomyelitis [Fatal]
  - Decubitus ulcer [Unknown]
